FAERS Safety Report 17579034 (Version 1)
Quarter: 2020Q1

REPORT INFORMATION
  Report Type: Spontaneous
  Country: CN (occurrence: CN)
  Receive Date: 20200325
  Receipt Date: 20200325
  Transmission Date: 20200409
  Serious: Yes (Other)
  Sender: FDA-Public Use
  Company Number: CN-BAXTER-2020BAX006416

PATIENT
  Age: 47 Year
  Sex: Female
  Weight: 72 kg

DRUGS (5)
  1. PIRARUBICIN HYDROCHLORIDE [Suspect]
     Active Substance: PIRARUBICIN HYDROCHLORIDE
     Indication: BREAST CANCER
     Dosage: DAY 1-2, PIRARUBICIN HYDROCHLORIDE 50 MG + 5% GLUCOSE 100 ML, EVERY 14 DAYS
     Route: 041
     Dates: start: 20200222, end: 20200223
  2. 0.9% SODIUM CHLORIDE INJECTION [Suspect]
     Active Substance: SODIUM CHLORIDE
     Indication: MEDICATION DILUTION
     Dosage: DAY 1, CYCLOPHOSPHAMIDE 1000 MG + 0.9% SODIUM CHLORIDE 100 ML
     Route: 041
     Dates: start: 20200222, end: 20200222
  3. ENDOXAN [Suspect]
     Active Substance: CYCLOPHOSPHAMIDE
     Indication: BREAST CANCER
     Dosage: DAY 1, CYCLOPHOSPHAMIDE 1000 MG + 0.9% SODIUM CHLORIDE 100 ML
     Route: 041
     Dates: start: 20200222, end: 20200222
  4. 5% GLUCOSE  INJECTION [Suspect]
     Active Substance: DEXTROSE
     Indication: MEDICATION DILUTION
     Dosage: DAY 1-2, PIRARUBICIN HYDROCHLORIDE 50 MG + 5% GLUCOSE 100 ML, EVERY 14 DAYS
     Route: 041
     Dates: start: 20200222, end: 20200223
  5. RECOMBINANT HUMAN GRANULOCYTE STIMULATING FACTOR [Concomitant]
     Indication: PROPHYLAXIS
     Route: 058
     Dates: start: 202002

REACTIONS (1)
  - Bone marrow failure [Recovered/Resolved]

NARRATIVE: CASE EVENT DATE: 20200305
